FAERS Safety Report 4430435-2 (Version None)
Quarter: 2004Q3

REPORT INFORMATION
  Report Type: 
  Country: None (occurrence: None)
  Receive Date: 20040820
  Receipt Date: 20040816
  Transmission Date: 20050211
  Serious: Yes (Life-Threatening, Hospitalization)
  Sender: FDA-Public Use
  Company Number: DE-MERCK-0408DEU00110

PATIENT
  Age: 82 Year
  Sex: Female
  Weight: 80 kg

DRUGS (2)
  1. ASPIRIN [Suspect]
     Indication: CEREBRAL INFARCTION
     Route: 048
     Dates: start: 20020101, end: 20040503
  2. VIOXX [Suspect]
     Indication: ANKLE FRACTURE
     Route: 048
     Dates: start: 20040101, end: 20040429

REACTIONS (3)
  - GASTRIC ULCER PERFORATION [None]
  - PERITONITIS [None]
  - SEPTIC SHOCK [None]
